FAERS Safety Report 6880229-3 (Version None)
Quarter: 2010Q3

REPORT INFORMATION
  Report Type: 
  Country: None (occurrence: None)
  Receive Date: 20100728
  Receipt Date: 20100716
  Transmission Date: 20110219
  Serious: Yes (Hospitalization)
  Sender: FDA-Public Use
  Company Number: FR-SANOFI-AVENTIS-2010SA041722

PATIENT
  Age: 83 Year
  Sex: Female

DRUGS (4)
  1. PLAVIX [Suspect]
     Route: 048
     Dates: start: 20100101
  2. KARDEGIC [Concomitant]
     Indication: PRODUCT USED FOR UNKNOWN INDICATION
  3. ACEBUTOLOL [Concomitant]
     Indication: PRODUCT USED FOR UNKNOWN INDICATION
  4. EZETROL [Concomitant]
     Indication: PRODUCT USED FOR UNKNOWN INDICATION

REACTIONS (4)
  - DEHYDRATION [None]
  - DIARRHOEA [None]
  - MALNUTRITION [None]
  - VOMITING [None]
